FAERS Safety Report 11713219 (Version 1)
Quarter: 2015Q4

REPORT INFORMATION
  Report Type: Spontaneous
  Country: CA (occurrence: CA)
  Receive Date: 20151109
  Receipt Date: 20151109
  Transmission Date: 20160304
  Serious: Yes (Death, Hospitalization)
  Sender: FDA-Public Use
  Company Number: CA-HOSPIRA-3062863

PATIENT
  Age: 59 Year
  Sex: Female
  Weight: 60 kg

DRUGS (3)
  1. DILAUDID [Concomitant]
     Active Substance: HYDROMORPHONE HYDROCHLORIDE
     Indication: PRODUCT USED FOR UNKNOWN INDICATION
     Route: 065
  2. HYDROMORPH CONTIN [Concomitant]
     Active Substance: HYDROMORPHONE
     Indication: PRODUCT USED FOR UNKNOWN INDICATION
     Route: 065
  3. PACLITAXEL. [Suspect]
     Active Substance: PACLITAXEL
     Indication: PANCREATIC CARCINOMA METASTATIC
     Route: 041

REACTIONS (7)
  - General physical health deterioration [Fatal]
  - Nausea [Fatal]
  - Gastrointestinal obstruction [Fatal]
  - Vomiting [Fatal]
  - Death [Fatal]
  - Drug dose omission [Fatal]
  - Hypotension [Fatal]
